FAERS Safety Report 9174643 (Version 4)
Quarter: 2013Q3

REPORT INFORMATION
  Report Type: Report from Study
  Country: FR (occurrence: FR)
  Receive Date: 20130320
  Receipt Date: 20130809
  Transmission Date: 20140515
  Serious: Yes (Other)
  Sender: FDA-Public Use
  Company Number: FR-BAYER-2013-032512

PATIENT
  Age: 72 Year
  Sex: 0

DRUGS (1)
  1. REGORAFENIB [Suspect]
     Dosage: DAILY DOSE 160 MG
     Dates: start: 20130214, end: 20130306

REACTIONS (8)
  - Hepatitis [Recovered/Resolved]
  - General physical health deterioration [None]
  - Fatigue [None]
  - Palmar-plantar erythrodysaesthesia syndrome [None]
  - Skin ulcer [Recovered/Resolved]
  - Jaundice [Recovered/Resolved]
  - Asthenia [Recovered/Resolved]
  - Decreased appetite [Recovered/Resolved]
